FAERS Safety Report 7939137-9 (Version None)
Quarter: 2011Q4

REPORT INFORMATION
  Report Type: 
  Country: None (occurrence: None)
  Receive Date: 20111124
  Receipt Date: 20111116
  Transmission Date: 20120403
  Serious: Yes (Other)
  Sender: FDA-Public Use
  Company Number: JP-ROCHE-1014750

PATIENT
  Age: 17 Year
  Sex: Female

DRUGS (2)
  1. ROCEPHIN [Suspect]
     Indication: APPENDICITIS
     Dosage: DOSAGE IS UNCERTAIN.
     Route: 042
     Dates: start: 20081201
  2. ROCEPHIN [Suspect]
     Dosage: DOSAGE IS UNCERTAIN.
     Route: 042
     Dates: start: 20091101

REACTIONS (1)
  - CHOLELITHIASIS [None]
